FAERS Safety Report 4878961-6 (Version None)
Quarter: 2006Q1

REPORT INFORMATION
  Report Type: 
  Country: None (occurrence: None)
  Receive Date: 20060112
  Receipt Date: 20051220
  Transmission Date: 20060701
  Serious: Yes (Hospitalization)
  Sender: FDA-Public Use
  Company Number: US-MERCK-0512USA03335

PATIENT
  Age: 57 Year
  Sex: Female
  Weight: 55 kg

DRUGS (15)
  1. VIOXX [Suspect]
     Indication: ARTHRITIS
     Route: 048
     Dates: start: 19990501, end: 19990701
  2. ATENOLOL [Concomitant]
     Route: 065
  3. PRAVACHOL [Concomitant]
     Route: 065
  4. NOVOLIN [Concomitant]
     Route: 065
  5. NOVOLIN [Concomitant]
     Route: 065
  6. ORTHO-EST [Concomitant]
     Route: 065
  7. PROVERA [Concomitant]
     Route: 065
  8. CLONIDINE [Concomitant]
     Route: 065
  9. NORVASC [Concomitant]
     Route: 065
  10. ZESTRIL [Concomitant]
     Route: 065
  11. LASIX [Concomitant]
     Route: 065
  12. ALDACTONE [Concomitant]
     Route: 065
  13. PREMARIN [Concomitant]
     Route: 065
  14. FLOVENT [Concomitant]
     Route: 065
  15. REZULIN [Concomitant]
     Route: 065

REACTIONS (9)
  - ACUTE MYOCARDIAL INFARCTION [None]
  - ANGINA UNSTABLE [None]
  - ARTERIAL DISORDER [None]
  - CARDIAC FAILURE CONGESTIVE [None]
  - CHOLELITHIASIS [None]
  - GASTROINTESTINAL HAEMORRHAGE [None]
  - LEG AMPUTATION [None]
  - PULMONARY OEDEMA [None]
  - SKIN ULCER [None]
